FAERS Safety Report 7690398-3 (Version None)
Quarter: 2011Q3

REPORT INFORMATION
  Report Type: 
  Country: None (occurrence: None)
  Receive Date: 20110818
  Receipt Date: 20110804
  Transmission Date: 20111222
  Serious: Yes (Hospitalization)
  Sender: FDA-Public Use
  Company Number: CA-CELGENEUS-028-50794-11080624

PATIENT
  Age: 61 Year
  Sex: Male
  Weight: 106 kg

DRUGS (10)
  1. VIDAZA [Suspect]
  2. ONDANSETRON [Concomitant]
     Dosage: 8 MILLIGRAM
     Route: 048
  3. PROPAFENONE HCL [Concomitant]
     Dosage: 150 MILLIGRAM
     Route: 048
  4. ALLOPURINOL [Concomitant]
     Dosage: 200 MILLIGRAM
     Route: 048
  5. FUROSEMIDE [Concomitant]
     Dosage: 40 MILLIGRAM
     Route: 048
  6. GLUMETZA [Concomitant]
     Dosage: 1000 MILLIGRAM
     Route: 048
  7. PERINDOPRIL ERBUMINE [Concomitant]
     Dosage: 2 MILLIGRAM
     Route: 048
  8. VIDAZA [Suspect]
     Indication: MYELODYSPLASTIC SYNDROME
     Dosage: 75 MILLIGRAM/SQ. METER
     Route: 058
     Dates: start: 20110124, end: 20110125
  9. CALCIUM/VITAMIN D [Concomitant]
     Dosage: 500/400U
     Route: 048
  10. DILTIAZEM CD [Concomitant]
     Dosage: 180 MILLIGRAM
     Route: 048

REACTIONS (1)
  - ATRIAL FLUTTER [None]
